FAERS Safety Report 19046972 (Version 7)
Quarter: 2022Q3

REPORT INFORMATION
  Report Type: Spontaneous
  Country: US (occurrence: US)
  Receive Date: 20210323
  Receipt Date: 20220923
  Transmission Date: 20221027
  Serious: Yes (Hospitalization, Other)
  Sender: FDA-Public Use
  Company Number: US-SA-SAC20210315000099

PATIENT
  Age: 55 Year
  Sex: Female
  Weight: 73.48 kg

DRUGS (2)
  1. CAPRELSA [Suspect]
     Active Substance: VANDETANIB
     Indication: Thyroid cancer
     Dosage: 300 MG, QOD
     Route: 048
     Dates: start: 20151208, end: 20220830
  2. CAPRELSA [Suspect]
     Active Substance: VANDETANIB
     Dosage: 200 MG, QD

REACTIONS (6)
  - Nephrolithiasis [Not Recovered/Not Resolved]
  - Electrocardiogram QT prolonged [Recovering/Resolving]
  - Blood calcitonin increased [Not Recovered/Not Resolved]
  - Disturbance in attention [Unknown]
  - Feeling abnormal [Unknown]
  - Fatigue [Unknown]
